FAERS Safety Report 5938228-1 (Version None)
Quarter: 2008Q4

REPORT INFORMATION
  Report Type: 
  Country: None (occurrence: None)
  Receive Date: 20081031
  Receipt Date: 20081021
  Transmission Date: 20090506
  Serious: Yes (Other)
  Sender: FDA-Public Use
  Company Number: US-PFIZER INC-2008089449

PATIENT
  Sex: Male

DRUGS (2)
  1. GEODON [Suspect]
     Indication: SCHIZOPHRENIA
     Dates: start: 20070201, end: 20081001
  2. GEODON [Suspect]
     Indication: BIPOLAR DISORDER

REACTIONS (3)
  - PSYCHIATRIC DECOMPENSATION [None]
  - SCHIZOPHRENIA [None]
  - VOMITING [None]
